FAERS Safety Report 10149896 (Version 1)
Quarter: 2014Q2

REPORT INFORMATION
  Report Type: Spontaneous
  Country: IT (occurrence: IT)
  Receive Date: 20140502
  Receipt Date: 20140502
  Transmission Date: 20141212
  Serious: Yes (Hospitalization, Other)
  Sender: FDA-Public Use
  Company Number: IT-ELI_LILLY_AND_COMPANY-IT201404008050

PATIENT
  Age: 40 Year
  Sex: Male

DRUGS (5)
  1. HUMALOG LISPRO [Suspect]
     Indication: TYPE 1 DIABETES MELLITUS
     Dosage: 30 IU, QD
     Route: 058
     Dates: start: 20120101, end: 20130111
  2. LANTUS [Suspect]
     Indication: TYPE 1 DIABETES MELLITUS
     Dosage: 25 IU, QD
     Route: 058
     Dates: start: 20120101, end: 20130111
  3. LANSOX [Concomitant]
     Route: 048
  4. CARDIOASPIRIN [Concomitant]
     Route: 048
  5. TRIATEC [Concomitant]
     Route: 048

REACTIONS (4)
  - Blood glucose abnormal [Unknown]
  - Acidosis [Unknown]
  - Hypoglycaemia [Recovering/Resolving]
  - Syncope [Recovering/Resolving]
